FAERS Safety Report 9500097 (Version 1)
Quarter: 2013Q1

REPORT INFORMATION
  Report Type: Spontaneous
  Country: US (occurrence: None)
  Receive Date: 20130129
  Receipt Date: 20130129
  Transmission Date: 20140127
  Serious: Yes (Other)
  Sender: FDA-Public Use
  Company Number: 1000030363

PATIENT
  Age: 49 Year
  Sex: Female

DRUGS (2)
  1. BYSTOLIC [Suspect]
     Indication: BLOOD PRESSURE INCREASED
     Dates: start: 201203
  2. ARMOUR (THYROID) (THYROID) [Concomitant]

REACTIONS (4)
  - Blood pressure increased [None]
  - Erythema [None]
  - Vascular rupture [None]
  - Drug ineffective [None]
